FAERS Safety Report 26124017 (Version 2)
Quarter: 2025Q4

REPORT INFORMATION
  Report Type: Other
  Country: EU (occurrence: EU)
  Receive Date: 20251205
  Receipt Date: 20251211
  Transmission Date: 20260118
  Serious: Yes (Death, Life-Threatening, Other)
  Sender: GLENMARK
  Company Number: None

PATIENT
  Age: 53 Year
  Sex: Female
  Weight: 110 kg

DRUGS (9)
  1. ATOVAQUONE [Suspect]
     Active Substance: ATOVAQUONE
     Indication: Pneumocystis jirovecii pneumonia
     Dosage: 750/57 MILLIGRAM PER MILLILITRE 50 MILLIGRAM, BID (750MG TOUTES LES 12H)
     Route: 048
     Dates: start: 20251031, end: 20251102
  2. ATOVAQUONE [Suspect]
     Active Substance: ATOVAQUONE
     Dosage: 1500 MILLIGRAM, BID (750MG/12H)
     Route: 048
     Dates: start: 20251031, end: 20251102
  3. BACTRIM [Concomitant]
     Active Substance: SULFAMETHOXAZOLE\TRIMETHOPRIM
     Indication: Pneumocystis jirovecii pneumonia
     Dosage: 4 DOSAGE FORM, TID (4 AMPOULES TOUTES LES 8H) (FORMULATION: SOLUTION INJECTABLE POUR PERFUSION )
     Route: 042
     Dates: start: 20251023, end: 20251030
  4. BACTRIM [Concomitant]
     Active Substance: SULFAMETHOXAZOLE\TRIMETHOPRIM
     Dosage: 12 DOSAGE FORM, TID (4 AMPOULES TOUTES LES 8H) (FORMULATION: SOLUTION INJECTABLE POUR PERFUSION )
     Route: 042
     Dates: start: 20251023, end: 20251030
  5. TOCILIZUMAB [Concomitant]
     Active Substance: TOCILIZUMAB
     Indication: Still^s disease
     Dosage: 800 MILLIGRAM, OD (FORMULATION: SOLUTION ? DILUER POUR PERFUSION)
     Route: 042
     Dates: start: 20251027, end: 20251027
  6. CEFOTAXIME [Concomitant]
     Active Substance: CEFOTAXIME SODIUM
     Indication: Lung disorder
     Dosage: 2 GRAM, TID (2G TOUTES LES 8H) (FORMULATION: POUDRE POUR SOLUTION INJECTABLE (IM-IV))
     Route: 042
     Dates: start: 20251023, end: 20251028
  7. CEFOTAXIME [Concomitant]
     Active Substance: CEFOTAXIME SODIUM
     Dosage: 6 GRAMS, OD(2G TOUTES LES 8H) (FORMULATION: POUDRE POUR SOLUTION INJECTABLE (IM-IV))
     Route: 042
     Dates: start: 20251023, end: 20251028
  8. SPIRAMYCIN [Concomitant]
     Active Substance: SPIRAMYCIN
     Indication: Lung disorder
     Dosage: 3 MILLION INTERNATIONAL UNIT, TID (3 MUI TOUTES LES 8H) (FORMULATION: COMPRIM? PELLICUL?)
     Route: 048
     Dates: start: 20251023, end: 20251028
  9. SPIRAMYCIN [Concomitant]
     Active Substance: SPIRAMYCIN
     Dosage: 6 MILLION INTERNATIONAL UNIT, OD (3 MUI / 8H)
     Route: 048
     Dates: start: 20251023, end: 20251028

REACTIONS (2)
  - Cardio-respiratory arrest [Fatal]
  - Angioedema [Fatal]

NARRATIVE: CASE EVENT DATE: 20251103
